FAERS Safety Report 7487215-3 (Version None)
Quarter: 2011Q2

REPORT INFORMATION
  Report Type: 
  Country: None (occurrence: None)
  Receive Date: 20110518
  Receipt Date: 20110405
  Transmission Date: 20111010
  Serious: Yes (Hospitalization, Other)
  Sender: FDA-Public Use
  Company Number: US-BAYER-201036346NA

PATIENT
  Age: 30 Year
  Sex: Female
  Weight: 71.655 kg

DRUGS (12)
  1. KLONOPIN [Concomitant]
  2. LAMICTAL [Concomitant]
  3. CELEXA [Concomitant]
  4. YASMIN [Suspect]
     Indication: PRODUCT USED FOR UNKNOWN INDICATION
     Route: 048
     Dates: start: 20050701, end: 20090501
  5. NEXIUM [Concomitant]
  6. YAZ [Suspect]
  7. BACTRIM [Concomitant]
     Indication: URINARY TRACT INFECTION
  8. WELLBUTRIN [Concomitant]
  9. INDOMETHACIN [Concomitant]
     Indication: URINARY TRACT INFECTION
  10. XANAX [Concomitant]
  11. ANTACIDS [Concomitant]
  12. ALLEGRA-D 12 HOUR [Concomitant]

REACTIONS (3)
  - GALLBLADDER DISORDER [None]
  - CHOLECYSTITIS CHRONIC [None]
  - CHOLELITHIASIS [None]
